FAERS Safety Report 4998135-8 (Version None)
Quarter: 2006Q2

REPORT INFORMATION
  Report Type: 
  Country: None (occurrence: None)
  Receive Date: 20060508
  Receipt Date: 20060425
  Transmission Date: 20061013
  Serious: Yes (Other)
  Sender: FDA-Public Use
  Company Number: 2006056616

PATIENT
  Age: 66 Year

DRUGS (4)
  1. BEXTRA [Suspect]
     Indication: FIBROMYALGIA
     Dosage: 10 MG (10 MG, 1 IN 1 D),
     Dates: start: 20050228, end: 20050505
  2. CELEBREX [Suspect]
     Indication: FIBROMYALGIA
     Dosage: (200 MG)
     Dates: start: 20010228, end: 20050101
  3. SYNTHROID [Concomitant]
  4. AMBIEN [Concomitant]

REACTIONS (11)
  - ASTHENIA [None]
  - BLISTER [None]
  - BURNING SENSATION [None]
  - DERMATITIS [None]
  - ERYTHEMA [None]
  - FATIGUE [None]
  - PHOTOSENSITIVITY REACTION [None]
  - PRURITUS [None]
  - SKIN EXFOLIATION [None]
  - SKIN IRRITATION [None]
  - SKIN LESION [None]
